FAERS Safety Report 16961226 (Version 2)
Quarter: 2019Q4

REPORT INFORMATION
  Report Type: Report from Study
  Country: CA (occurrence: CA)
  Receive Date: 20191025
  Receipt Date: 20191109
  Transmission Date: 20200122
  Serious: Yes (Death)
  Sender: FDA-Public Use
  Company Number: CA-HLSUS-2019-CA-001419

PATIENT
  Age: 45 Year
  Sex: Male
  Weight: 84.4 kg

DRUGS (4)
  1. RIVOTRIL [Concomitant]
     Active Substance: CLONAZEPAM
     Indication: SCHIZOPHRENIA
     Dosage: 1MG BID
     Route: 048
  2. EFFEXOR XR [Concomitant]
     Active Substance: VENLAFAXINE HYDROCHLORIDE
     Indication: SCHIZOPHRENIA
     Dosage: 225MG
     Route: 048
  3. CLOZARIL [Suspect]
     Active Substance: CLOZAPINE
     Indication: SCHIZOPHRENIA
     Dosage: 100MG AM, 200MG AT DINNER AND 200MG HS
     Route: 048
     Dates: start: 200402
  4. HALDOL [Concomitant]
     Active Substance: HALOPERIDOL
     Indication: SCHIZOPHRENIA
     Dosage: 2MG TID
     Route: 048

REACTIONS (11)
  - Pneumonia [Fatal]
  - Cystitis [Unknown]
  - Obesity [Unknown]
  - Pancytopenia [Unknown]
  - Dyslipidaemia [Unknown]
  - Septic shock [Fatal]
  - Pneumonia [Unknown]
  - Cardiac murmur [Unknown]
  - Pyrexia [Unknown]
  - Chronic obstructive pulmonary disease [Unknown]
  - Bronchitis [Unknown]
